FAERS Safety Report 7473968-7 (Version None)
Quarter: 2011Q2

REPORT INFORMATION
  Report Type: 
  Country: None (occurrence: None)
  Receive Date: 20110511
  Receipt Date: 20091031
  Transmission Date: 20111010
  Serious: Yes (Hospitalization, Other)
  Sender: FDA-Public Use
  Company Number: US-BAYER-200937864NA

PATIENT
  Age: 67 Year
  Sex: Male
  Weight: 71.882 kg

DRUGS (12)
  1. TRASYLOL [Suspect]
     Indication: AORTIC VALVE REPLACEMENT
     Dosage: UNKNOWN AMOUNT OF TEST DOSE
     Route: 042
     Dates: start: 20040628, end: 20040628
  2. LIPITOR [Concomitant]
     Dosage: 20 MG, QD
     Route: 048
     Dates: start: 20040624
  3. ANCEF [Concomitant]
     Dosage: 2 G, UNK
     Dates: start: 20040628, end: 20040628
  4. ETOMIDATE [Concomitant]
     Dosage: 20 MG, UNK
     Dates: start: 20040628, end: 20040628
  5. TRASYLOL [Suspect]
     Indication: CORONARY ARTERY BYPASS
     Dosage: UNKNOWN AMOUNT OF LOADING DOSE
     Route: 042
     Dates: start: 20040628, end: 20040628
  6. TRASYLOL [Suspect]
     Indication: INTRA-AORTIC BALLOON PLACEMENT
     Dosage: 50 ML/HR INFUSION
     Route: 042
     Dates: start: 20040628, end: 20040628
  7. LASIX [Concomitant]
     Dosage: 40 MG, BID
     Route: 048
     Dates: start: 20040624
  8. ZOCOR [Concomitant]
     Dosage: 40 MG, QD
     Route: 048
     Dates: start: 20040624
  9. COREG [Concomitant]
     Dosage: 6.25 MG, BID
     Route: 048
     Dates: start: 20040624
  10. HEPARIN [Concomitant]
     Dosage: MULTIPLE DOSES
     Dates: start: 20040628, end: 20040628
  11. LOPRESSOR [Concomitant]
     Dosage: 25 MG, BID
     Dates: start: 20040625
  12. ACETYLSALICYLIC ACID SRT [Concomitant]
     Dosage: 81 MG, QD
     Route: 048
     Dates: start: 20040624

REACTIONS (4)
  - RENAL FAILURE ACUTE [None]
  - RENAL DISORDER [None]
  - INJURY [None]
  - UNEVALUABLE EVENT [None]
